FAERS Safety Report 15122697 (Version 3)
Quarter: 2018Q4

REPORT INFORMATION
  Report Type: Spontaneous
  Country: JP (occurrence: JP)
  Receive Date: 20180709
  Receipt Date: 20181107
  Transmission Date: 20190204
  Serious: Yes (Hospitalization)
  Sender: FDA-Public Use
  Company Number: JP-EISAI MEDICAL RESEARCH-EC-2018-039555

PATIENT
  Age: 69 Year
  Sex: Male
  Weight: 55 kg

DRUGS (5)
  1. LENVIMA [Suspect]
     Active Substance: LENVATINIB
     Indication: HEPATOCELLULAR CARCINOMA
     Route: 048
     Dates: start: 20180405, end: 20180501
  2. LENVIMA [Suspect]
     Active Substance: LENVATINIB
     Route: 048
     Dates: start: 20180507, end: 201806
  3. LENVIMA [Suspect]
     Active Substance: LENVATINIB
     Dosage: 4 MG ONCE DAILY ON A 2-WEEK-ON/1-WEEK-OFF SCHEDULE
     Route: 048
     Dates: start: 201807, end: 201807
  4. LENVIMA [Suspect]
     Active Substance: LENVATINIB
     Dosage: 4 MG EVERY OTHER DAY ON A 2-WEEK-ON/1-WEEK-OFF SCHEDULE
     Route: 048
     Dates: start: 201807
  5. LENVIMA [Suspect]
     Active Substance: LENVATINIB
     Route: 048
     Dates: start: 20180625, end: 201807

REACTIONS (5)
  - C-reactive protein increased [Recovered/Resolved]
  - Decreased appetite [Recovering/Resolving]
  - Diarrhoea [Recovering/Resolving]
  - Pyrexia [Unknown]
  - White blood cell count increased [Recovered/Resolved]

NARRATIVE: CASE EVENT DATE: 20180419
